FAERS Safety Report 7214133-8 (Version None)
Quarter: 2011Q1

REPORT INFORMATION
  Report Type: 
  Country: None (occurrence: None)
  Receive Date: 20110107
  Receipt Date: 20101223
  Transmission Date: 20110831
  Serious: Yes (Hospitalization)
  Sender: FDA-Public Use
  Company Number: DE-CELGENEUS-062-21880-10122830

PATIENT
  Age: 66 Year
  Sex: Male

DRUGS (4)
  1. PIOGLITAZONE [Suspect]
     Indication: MULTIPLE MYELOMA
     Route: 048
     Dates: start: 20091130
  2. TREOSULFAN [Suspect]
     Indication: MULTIPLE MYELOMA
     Route: 048
     Dates: start: 20091130, end: 20101223
  3. REVLIMID [Suspect]
     Indication: MULTIPLE MYELOMA
     Route: 048
     Dates: start: 20091130, end: 20101223
  4. DEXAMETHASONE [Suspect]
     Indication: MULTIPLE MYELOMA
     Route: 048
     Dates: start: 20091130

REACTIONS (2)
  - RASH [None]
  - FAECALOMA [None]
